APPROVED DRUG PRODUCT: PHENAPHEN W/ CODEINE NO. 2
Active Ingredient: ACETAMINOPHEN; CODEINE PHOSPHATE
Strength: 325MG;15MG
Dosage Form/Route: CAPSULE;ORAL
Application: A084444 | Product #001
Applicant: AH ROBINS CO
Approved: Approved Prior to Jan 1, 1982 | RLD: No | RS: No | Type: DISCN